APPROVED DRUG PRODUCT: NORGESTIMATE AND ETHINYL ESTRADIOL
Active Ingredient: ETHINYL ESTRADIOL; NORGESTIMATE
Strength: 0.035MG,0.035MG,0.035MG;0.18MG,0.215MG,0.25MG
Dosage Form/Route: TABLET;ORAL-28
Application: A200383 | Product #001 | TE Code: AB
Applicant: NAARI PTE LTD
Approved: Apr 7, 2015 | RLD: No | RS: No | Type: RX